FAERS Safety Report 16396879 (Version 2)
Quarter: 2020Q1

REPORT INFORMATION
  Report Type: Report from Study
  Country: DE (occurrence: DE)
  Receive Date: 20190606
  Receipt Date: 20200127
  Transmission Date: 20200409
  Serious: Yes (Death, Hospitalization)
  Sender: FDA-Public Use
  Company Number: DE-ROCHE-2332114

PATIENT
  Age: 67 Year
  Sex: Male
  Weight: 76 kg

DRUGS (8)
  1. RITUXIMAB. [Suspect]
     Active Substance: RITUXIMAB
     Indication: CHRONIC LYMPHOCYTIC LEUKAEMIA
     Dosage: ON 14/MAY/2019, PATIENT RECEIVED MOST RECENT DAILY DOSE (950 MG) OF RITUXIMAB PRIOR TO SERIOUS ADVER
     Route: 065
     Dates: start: 20190416, end: 20190603
  2. SERASEPT 1 [Concomitant]
     Route: 050
     Dates: start: 20190531, end: 201906
  3. TANNOLACT [Concomitant]
     Route: 050
     Dates: start: 20190531, end: 201906
  4. VENETOCLAX. [Suspect]
     Active Substance: VENETOCLAX
     Indication: CHRONIC LYMPHOCYTIC LEUKAEMIA
     Dosage: ON 28/MAY/2019, PATIENT RECEIVED MOST RECENT DAILY DOSE (200 MG) OF VENETOCLAX PRIOR TO SERIOUS ADVE
     Route: 065
     Dates: start: 20190514, end: 20190603
  5. VENETOCLAX. [Suspect]
     Active Substance: VENETOCLAX
     Dosage: ON 30/MAY/2019, PATIENT RECEIVED MOST RECENT DAILY DOSE (200 MG) OF VENETOCLAX PRIOR TO SERIOUS ADVE
     Route: 065
     Dates: start: 20190507
  6. LAVANID [Concomitant]
     Route: 050
     Dates: start: 20190531, end: 201906
  7. COTRIM FORTE [Concomitant]
     Active Substance: SULFAMETHOXAZOLE\TRIMETHOPRIM
     Route: 048
     Dates: start: 20190601, end: 20190603
  8. ACICLOVIR [Concomitant]
     Active Substance: ACYCLOVIR
     Route: 050
     Dates: start: 20190531, end: 201906

REACTIONS (1)
  - Herpes zoster [Recovered/Resolved]

NARRATIVE: CASE EVENT DATE: 20190531
